FAERS Safety Report 8153945-3 (Version None)
Quarter: 2012Q1

REPORT INFORMATION
  Report Type: 
  Country: None (occurrence: None)
  Receive Date: 20120221
  Receipt Date: 20120221
  Transmission Date: 20120608
  Serious: No
  Sender: FDA-Public Use
  Company Number: None

PATIENT
  Age: 55 Year
  Sex: Female
  Weight: 113.39 kg

DRUGS (1)
  1. CIPRO [Suspect]
     Indication: SINUSITIS
     Route: 048
     Dates: start: 20120214, end: 20120217

REACTIONS (4)
  - CHILLS [None]
  - FATIGUE [None]
  - DIZZINESS [None]
  - DIARRHOEA [None]
